FAERS Safety Report 11344192 (Version 2)
Quarter: 2015Q3

REPORT INFORMATION
  Report Type: Spontaneous
  Country: IT (occurrence: IT)
  Receive Date: 20150806
  Receipt Date: 20150902
  Transmission Date: 20151125
  Serious: Yes (Hospitalization)
  Sender: FDA-Public Use
  Company Number: IT-AUROBINDO-AUR-APL-2015-06858

PATIENT
  Age: 89 Year
  Sex: Female

DRUGS (9)
  1. DEPAKIN CHRONO - 300 MG COMPRESSE A RILASCIO PROLUNGATO [Suspect]
     Active Substance: VALPROATE SODIUM
     Indication: DEPRESSION
     Dosage: 600 MG DAILY
     Route: 048
     Dates: start: 20150101, end: 20150617
  2. TRITTICO - AZIENDE CHIMICHE RIUNITE ANGELINI FRANCESCO ACRAF SPA [Suspect]
     Active Substance: TRAZODONE HYDROCHLORIDE
     Indication: DEPRESSION
     Dosage: 1 DF DAILY
     Route: 048
     Dates: start: 20150101, end: 20150617
  3. DEPAKIN CHRONO - 300 MG COMPRESSE A RILASCIO PROLUNGATO [Suspect]
     Active Substance: VALPROATE SODIUM
     Indication: DEPRESSION
     Dosage: 600 MG DAILY
     Route: 048
     Dates: start: 20150101, end: 20150617
  4. TRITTICO - AZIENDE CHIMICHE RIUNITE ANGELINI FRANCESCO ACRAF SPA [Suspect]
     Active Substance: TRAZODONE HYDROCHLORIDE
     Indication: DEPRESSION
     Dosage: 1 DF DAILY
     Route: 048
     Dates: start: 20150101, end: 20150617
  5. VALPROIC ACID. [Suspect]
     Active Substance: VALPROIC ACID
     Indication: PRODUCT USED FOR UNKNOWN INDICATION
  6. MIRTAZAPINE. [Suspect]
     Active Substance: MIRTAZAPINE
     Indication: DEPRESSION
     Dosage: 1 DF DAILY
     Route: 048
     Dates: start: 20150101, end: 20150617
  7. MIRTAZAPINE. [Suspect]
     Active Substance: MIRTAZAPINE
     Indication: DEPRESSION
     Dosage: 1 DF DAILY
     Route: 048
     Dates: start: 20150101, end: 20150617
  8. CLOZAPINE. [Suspect]
     Active Substance: CLOZAPINE
     Indication: DEPRESSION
     Dosage: 2 DF DAILY
     Route: 048
     Dates: start: 20150101, end: 20150617
  9. CLOZAPINE. [Suspect]
     Active Substance: CLOZAPINE
     Indication: DEPRESSION
     Dosage: 2 DF DAILY
     Route: 048
     Dates: start: 20150101, end: 20150617

REACTIONS (2)
  - Sopor [Unknown]
  - Depressed level of consciousness [Unknown]

NARRATIVE: CASE EVENT DATE: 20150618
